FAERS Safety Report 10171040 (Version 2)
Quarter: 2014Q2

REPORT INFORMATION
  Report Type: Spontaneous
  Country: US (occurrence: None)
  Receive Date: 20140512
  Receipt Date: 20140617
  Transmission Date: 20141212
  Serious: Yes (Other)
  Sender: FDA-Public Use
  Company Number: 2014P1003804

PATIENT
  Age: 15 Year
  Sex: Male

DRUGS (8)
  1. MYORISAN [Suspect]
     Indication: ACNE
     Dosage: 40 MG, 2X/DAY, ORAL
     Route: 048
     Dates: start: 20140225, end: 201403
  2. LEVOTHYROXINE [Concomitant]
  3. MONTELUKAST [Concomitant]
  4. CETIRIZINE [Concomitant]
  5. MULTIVITIAMIN/MINERAL [Concomitant]
  6. VITAMIN D2 [Concomitant]
  7. RANITIDINE [Concomitant]
  8. ARMODAFINIL [Concomitant]

REACTIONS (1)
  - Depression [None]
